FAERS Safety Report 25145800 (Version 3)
Quarter: 2025Q2

REPORT INFORMATION
  Report Type: Report from Study
  Country: BE (occurrence: BE)
  Receive Date: 20250401
  Receipt Date: 20250619
  Transmission Date: 20250717
  Serious: Yes (Death, Life-Threatening)
  Sender: NOVARTIS
  Company Number: BE-002147023-NVSC2025BE039384

PATIENT
  Age: 69 Year
  Sex: Male

DRUGS (1)
  1. TABRECTA [Suspect]
     Active Substance: CAPMATINIB
     Indication: Non-small cell lung cancer metastatic
     Dosage: 400 MG, TWO TIMES A DAY
     Route: 048
     Dates: start: 20220616, end: 20250228

REACTIONS (5)
  - Colon neoplasm [Fatal]
  - Second primary malignancy [Fatal]
  - Oedema [Recovering/Resolving]
  - Anaemia [Unknown]
  - General physical health deterioration [Unknown]

NARRATIVE: CASE EVENT DATE: 20221001
